FAERS Safety Report 10658421 (Version 1)
Quarter: 2014Q4

REPORT INFORMATION
  Report Type: Spontaneous
  Country: US (occurrence: None)
  Receive Date: 20141205
  Receipt Date: 20141205
  Transmission Date: 20150529
  Serious: Yes (Hospitalization, Other)
  Sender: FDA-Public Use
  Company Number: USA-2014100450

PATIENT
  Age: 76 Year
  Sex: Female
  Weight: 61.69 kg

DRUGS (6)
  1. LATANOPROST(LATANOPROST) [Concomitant]
  2. HYDROCODONE-ACETAMINOPHEN(PARACETAMOL, HYDROCODONE BITARTRATE) [Concomitant]
  3. TRAMADOL HYDROCHLORIDE. [Concomitant]
     Active Substance: TRAMADOL HYDROCHLORIDE
  4. POMALYST [Suspect]
     Active Substance: POMALIDOMIDE
     Indication: PLASMA CELL MYELOMA
     Dosage: 4 MG, 21 IN 21 D, PO
     Route: 048
     Dates: start: 20140905
  5. DESLORATADINE(DESLORATADINE) [Concomitant]
  6. FLECTOR(DICLOFENAC SODIUM) [Concomitant]

REACTIONS (3)
  - Weight decreased [None]
  - Pneumonia [None]
  - Decreased appetite [None]
